FAERS Safety Report 10866278 (Version 1)
Quarter: 2015Q1

REPORT INFORMATION
  Report Type: Spontaneous
  Country: US (occurrence: None)
  Receive Date: 20150219
  Receipt Date: 20150219
  Transmission Date: 20150721
  Serious: Yes (Disabling, Other)
  Sender: FDA-Public Use
  Company Number: None

PATIENT
  Age: 35 Year
  Sex: Female
  Weight: 63.5 kg

DRUGS (1)
  1. ACYCLOVIR. [Suspect]
     Active Substance: ACYCLOVIR
     Indication: VIRAL INFECTION
     Dosage: SAME AS OTHER MEDWATCH FORMS
     Dates: start: 20141204, end: 20141224

REACTIONS (4)
  - Unevaluable event [None]
  - Hypersensitivity [None]
  - Viral infection [None]
  - Drug ineffective [None]

NARRATIVE: CASE EVENT DATE: 20141224
